FAERS Safety Report 7809518-2 (Version None)
Quarter: 2011Q4

REPORT INFORMATION
  Report Type: 
  Country: None (occurrence: None)
  Receive Date: 20111012
  Receipt Date: 20111004
  Transmission Date: 20120403
  Serious: Yes (Other)
  Sender: FDA-Public Use
  Company Number: PHHY2011BR69605

PATIENT
  Sex: Male

DRUGS (2)
  1. SANDOSTATIN LAR [Suspect]
     Dosage: 10 MG, UNK
     Dates: end: 20110701
  2. SANDOSTATIN LAR [Suspect]
     Indication: ACROMEGALY
     Dosage: 20 MG EVERY 28 DAYS

REACTIONS (4)
  - HYPERTENSION [None]
  - OEDEMA PERIPHERAL [None]
  - HEADACHE [None]
  - BRAIN NEOPLASM [None]
